FAERS Safety Report 9024213 (Version 2)
Quarter: 2013Q2

REPORT INFORMATION
  Report Type: Spontaneous
  Country: IT (occurrence: IT)
  Receive Date: 20130122
  Receipt Date: 20130408
  Transmission Date: 20140414
  Serious: Yes (Hospitalization)
  Sender: FDA-Public Use
  Company Number: IT-BRISTOL-MYERS SQUIBB COMPANY-17292905

PATIENT
  Age: 79 Year
  Sex: Male

DRUGS (8)
  1. COUMADIN TABS 5 MG [Suspect]
     Route: 048
     Dates: start: 20120101, end: 20120616
  2. DILATREND [Suspect]
  3. PAROXETINE HCL [Concomitant]
  4. STILNOX [Concomitant]
  5. TRITTICO [Concomitant]
  6. RYTMONORM [Concomitant]
  7. MIRAPEXIN [Concomitant]
  8. SIMVASTATIN [Concomitant]

REACTIONS (3)
  - Presyncope [Recovering/Resolving]
  - Bradycardia [Recovering/Resolving]
  - Overdose [Unknown]
